FAERS Safety Report 8201847-6 (Version None)
Quarter: 2012Q1

REPORT INFORMATION
  Report Type: 
  Country: None (occurrence: None)
  Receive Date: 20120307
  Receipt Date: 20120221
  Transmission Date: 20120608
  Serious: Yes (Death, Hospitalization)
  Sender: FDA-Public Use
  Company Number: UTC-015867

PATIENT
  Age: 47 Year
  Sex: Male
  Weight: 109 kg

DRUGS (4)
  1. DIURETICS (DIURETICS) [Concomitant]
  2. REMODULIN [Suspect]
     Indication: COR PULMONALE
     Dosage: 57.6 UG/KG (0..04 UG/KG, 1 IN 1 MIN), INTRAVENOUS
     Route: 042
     Dates: start: 20030301
  3. REVATIO [Concomitant]
  4. COUMADIN [Concomitant]

REACTIONS (1)
  - ENDOCARDITIS [None]
